FAERS Safety Report 23532134 (Version 1)
Quarter: 2024Q1

REPORT INFORMATION
  Report Type: Spontaneous
  Country: US (occurrence: None)
  Receive Date: 20240215
  Receipt Date: 20240215
  Transmission Date: 20240409
  Serious: Yes (Death)
  Sender: FDA-Public Use
  Company Number: None

PATIENT
  Age: 61 Year
  Sex: Male

DRUGS (8)
  1. PREZCOBIX [Suspect]
     Active Substance: COBICISTAT\DARUNAVIR ETHANOLATE
     Indication: HIV infection
     Dosage: OTHER FREQUENCY : WITH BREAKFAST?
     Route: 048
     Dates: start: 20210831
  2. EDURANT [Concomitant]
     Active Substance: RILPIVIRINE HYDROCHLORIDE
  3. OXYCODONE AND ACETAMINOPHEN [Concomitant]
     Active Substance: ACETAMINOPHEN\OXYCODONE HYDROCHLORIDE
  4. ROSUVASTATIN [Concomitant]
     Active Substance: ROSUVASTATIN
  5. TADALAFIL [Concomitant]
     Active Substance: TADALAFIL
  6. TIVICAY [Concomitant]
     Active Substance: DOLUTEGRAVIR SODIUM
  7. VALACYCLOVIR [Concomitant]
     Active Substance: VALACYCLOVIR HYDROCHLORIDE
  8. VITAMIN D [Concomitant]
     Active Substance: VITAMIN D NOS

REACTIONS (1)
  - Death [None]

NARRATIVE: CASE EVENT DATE: 20240211
